FAERS Safety Report 10385484 (Version 1)
Quarter: 2014Q3

REPORT INFORMATION
  Report Type: Spontaneous
  Country: US (occurrence: None)
  Receive Date: 20140811
  Receipt Date: 20140811
  Transmission Date: 20150326
  Serious: Yes (Other)
  Sender: FDA-Public Use
  Company Number: 391 (EXCELLIUM) (FOLLOW UP 1)

PATIENT
  Age: 68 Year
  Sex: Female

DRUGS (1)
  1. LORAZEPAM. [Suspect]
     Active Substance: LORAZEPAM
     Indication: DEPRESSION
     Dosage: ORAL (047)
     Route: 048
     Dates: start: 20131114

REACTIONS (6)
  - Hypertension [None]
  - Nausea [None]
  - Agitation [None]
  - Exophthalmos [None]
  - Headache [None]
  - Insomnia [None]

NARRATIVE: CASE EVENT DATE: 20131014
